FAERS Safety Report 25051497 (Version 5)
Quarter: 2025Q1

REPORT INFORMATION
  Report Type: Spontaneous
  Country: US (occurrence: US)
  Receive Date: 20250307
  Receipt Date: 20250320
  Transmission Date: 20250408
  Serious: Yes (Death, Other)
  Sender: BAYER HEALTHCARE LLC
  Company Number: US-BAYER-2025A031570

PATIENT
  Age: 78 Year
  Sex: Female

DRUGS (2)
  1. LOTRIMIN ANTIFUNGAL (MICONAZOLE NITRATE) [Suspect]
     Active Substance: MICONAZOLE NITRATE
     Dates: start: 1970, end: 1989
  2. TINACTIN [Suspect]
     Active Substance: TOLNAFTATE

REACTIONS (4)
  - Mesothelioma [Fatal]
  - Pain [None]
  - Anxiety [None]
  - Product contamination [None]

NARRATIVE: CASE EVENT DATE: 20241212
